FAERS Safety Report 6342232-1 (Version None)
Quarter: 2009Q3

REPORT INFORMATION
  Report Type: 
  Country: None (occurrence: None)
  Receive Date: 20090903
  Receipt Date: 20090903
  Transmission Date: 20100115
  Serious: Yes (Death)
  Sender: FDA-Public Use
  Company Number: None

PATIENT
  Sex: Male
  Weight: 77 kg

DRUGS (1)
  1. HEPARIN [Suspect]
     Indication: DIALYSIS
     Dosage: TWO SHOTS 5 TIMES PER WEEK HEMODIALYSIS
     Dates: start: 20010101, end: 20090710

REACTIONS (13)
  - ABDOMINAL DISCOMFORT [None]
  - ABDOMINAL PAIN UPPER [None]
  - BLOOD PRESSURE DECREASED [None]
  - DIARRHOEA [None]
  - DIZZINESS [None]
  - DYSPNOEA [None]
  - HEART RATE INCREASED [None]
  - HYPERSOMNIA [None]
  - NAUSEA [None]
  - PRODUCT QUALITY ISSUE [None]
  - SHOCK [None]
  - SYNCOPE [None]
  - VOMITING [None]
